FAERS Safety Report 6730480-8 (Version None)
Quarter: 2010Q2

REPORT INFORMATION
  Report Type: 
  Country: None (occurrence: None)
  Receive Date: 20100518
  Receipt Date: 20100503
  Transmission Date: 20101027
  Serious: Yes (Other)
  Sender: FDA-Public Use
  Company Number: US-ROCHE-703096

PATIENT
  Age: 85 Year
  Sex: Female
  Weight: 61.2 kg

DRUGS (7)
  1. BONIVA [Suspect]
     Indication: OSTEOPOROSIS
     Route: 048
     Dates: start: 20100501
  2. FIORINAL W/CODEINE [Concomitant]
  3. SIMVASTATIN [Concomitant]
  4. DYAZIDE [Concomitant]
  5. LEVOTHYROXINE SODIUM [Concomitant]
  6. VITAMIN-MINERAL COMPOUND TAB [Concomitant]
  7. ESTRADIOL [Concomitant]

REACTIONS (5)
  - BLADDER DISORDER [None]
  - HEADACHE [None]
  - HYPOAESTHESIA [None]
  - MOBILITY DECREASED [None]
  - PAIN IN EXTREMITY [None]
